FAERS Safety Report 20526360 (Version 1)
Quarter: 2022Q1

REPORT INFORMATION
  Report Type: Spontaneous
  Country: IL (occurrence: IL)
  Receive Date: 20220228
  Receipt Date: 20220228
  Transmission Date: 20220423
  Serious: Yes (Other)
  Sender: FDA-Public Use
  Company Number: IL-PFIZER INC-202200332113

PATIENT
  Sex: Male
  Weight: 2.5 kg

DRUGS (6)
  1. MEROPENEM [Suspect]
     Active Substance: MEROPENEM
     Indication: Septic shock
     Dosage: 40MG/KG/DOSE, EVERY 8 H
  2. MEROPENEM [Suspect]
     Active Substance: MEROPENEM
     Indication: Enterobacter bacteraemia
     Dosage: 240 MG/KG, DAILY (CONTINOUS INFUSION)
     Route: 051
  3. AMIKACIN [Concomitant]
     Active Substance: AMIKACIN
     Indication: Septic shock
     Dosage: UNK
  4. AMIKACIN [Concomitant]
     Active Substance: AMIKACIN
     Indication: Enterobacter bacteraemia
  5. VANCOMYCIN [Concomitant]
     Active Substance: VANCOMYCIN
     Indication: Septic shock
     Dosage: UNK
  6. VANCOMYCIN [Concomitant]
     Active Substance: VANCOMYCIN
     Indication: Enterobacter bacteraemia

REACTIONS (3)
  - Drug resistance [Unknown]
  - Drug level above therapeutic [Unknown]
  - Off label use [Unknown]
